FAERS Safety Report 19990965 (Version 1)
Quarter: 2021Q4

REPORT INFORMATION
  Report Type: Spontaneous
  Country: US (occurrence: US)
  Receive Date: 20211025
  Receipt Date: 20211025
  Transmission Date: 20220303
  Serious: No
  Sender: FDA-Public Use
  Company Number: US-VIFOR (INTERNATIONAL) INC.-VIT-2021-07945

PATIENT
  Age: 92 Year
  Sex: Female
  Weight: 106.9 kg

DRUGS (5)
  1. MIRCERA [Suspect]
     Active Substance: METHOXY POLYETHYLENE GLYCOL-EPOETIN BETA
     Indication: Product used for unknown indication
     Route: 042
     Dates: start: 20210925
  2. VENOFER [Suspect]
     Active Substance: IRON SUCROSE
     Indication: Product used for unknown indication
     Route: 042
     Dates: start: 20210925, end: 20210925
  3. VENOFER [Suspect]
     Active Substance: IRON SUCROSE
     Route: 042
     Dates: start: 20210928
  4. HEPLISAV B [Concomitant]
     Dates: start: 20210928
  5. INFLUENZA VIRUS VACCINE [Concomitant]
     Active Substance: INFLUENZA VIRUS VACCINE
     Dates: start: 20210925

REACTIONS (1)
  - Rash [Recovered/Resolved]

NARRATIVE: CASE EVENT DATE: 20210929
